FAERS Safety Report 6872106-9 (Version None)
Quarter: 2010Q3

REPORT INFORMATION
  Report Type: 
  Country: None (occurrence: None)
  Receive Date: 20100723
  Receipt Date: 20100712
  Transmission Date: 20110219
  Serious: Yes (Other)
  Sender: FDA-Public Use
  Company Number: US-PFIZER INC-2010065497

PATIENT
  Sex: Male
  Weight: 72.574 kg

DRUGS (2)
  1. VIAGRA [Suspect]
     Indication: ERECTILE DYSFUNCTION
     Dosage: FREQUENCY: AS NEEDED,
     Route: 048
  2. AMLODIPINE BESYLATE [Concomitant]

REACTIONS (5)
  - CAROTID ARTERY STENOSIS [None]
  - CORONARY ARTERY STENOSIS [None]
  - OPTIC NERVE DISORDER [None]
  - SPINAL COLUMN STENOSIS [None]
  - VISUAL ACUITY REDUCED [None]
